FAERS Safety Report 8454026-1 (Version None)
Quarter: 2012Q2

REPORT INFORMATION
  Report Type: 
  Country: None (occurrence: None)
  Receive Date: 20120323
  Receipt Date: 20110818
  Transmission Date: 20120825
  Serious: Yes (Other)
  Sender: FDA-Public Use
  Company Number: 163-21880-11082423

PATIENT
  Age: 69 Year
  Sex: Female
  Weight: 86.6824 kg

DRUGS (27)
  1. ACTOS [Concomitant]
  2. DEXILANT [Concomitant]
  3. QUININE SULFATE [Concomitant]
  4. ULTRAM [Concomitant]
  5. METOPROLOL TARTRATE [Concomitant]
  6. LEVOTHYROXINE SODIUM [Concomitant]
  7. IRON (IRON) [Concomitant]
  8. POTASSIUM CHLORIDE [Concomitant]
  9. LOVAZA [Concomitant]
  10. TESSALON PEARL (BENZONATATE) [Concomitant]
  11. TRICOR [Concomitant]
  12. NEURONTIN [Concomitant]
  13. GLIMEPIRIDE [Concomitant]
  14. LESPRO INSULIN (INSULIN) [Concomitant]
  15. ZINC (ZINC) [Concomitant]
  16. ADVAIR HFA [Concomitant]
  17. ALLOPURINOL [Concomitant]
  18. DEXAMETHASONE [Concomitant]
  19. ASPIRIN [Concomitant]
  20. VALTREX [Concomitant]
  21. LASIX [Concomitant]
  22. REVLIMID [Suspect]
     Indication: MULTIPLE MYELOMA
     Dosage: 25 MG, 1 IN 1 D, PO
     Route: 048
     Dates: start: 20101022, end: 20110803
  23. ALDACTONE [Concomitant]
  24. CALCIUM CARBONATE [Concomitant]
  25. MAGNESIUM (MAGNESIUM) [Concomitant]
  26. CENTRUM SILVER (CENTRUM SILVER) [Concomitant]
  27. OXYBUTYNIN [Concomitant]

REACTIONS (2)
  - PAIN [None]
  - WHITE BLOOD CELL COUNT DECREASED [None]
